FAERS Safety Report 7889448-0 (Version None)
Quarter: 2011Q4

REPORT INFORMATION
  Report Type: 
  Country: None (occurrence: None)
  Receive Date: 20111103
  Receipt Date: 20111025
  Transmission Date: 20120403
  Serious: Yes (Death)
  Sender: FDA-Public Use
  Company Number: NL-TEVA-307056ISR

PATIENT
  Sex: Male
  Weight: 81 kg

DRUGS (15)
  1. ALFACALCIDOL CAPSULE 0,25UG [Concomitant]
     Dosage: .25 MICROGRAM;
     Route: 048
  2. PANTOPRAZOL TABLET MSR 40 MG [Concomitant]
     Dosage: 40 MILLIGRAM;
     Route: 048
  3. MELATONINE 1MG [Concomitant]
     Dosage: 2 MILLIGRAM;
  4. ACENOCOUMAROL TABLET 1MG [Concomitant]
  5. NOVOMIX 30 FLEXPEN INJ 100E/ML WWSP 3ML [Concomitant]
     Dosage: 2 DOSAGE FORMS;
  6. CLOPIDOGREL HYDROCHLORIDE TABLET 75MG [Concomitant]
     Dosage: 75 MILLIGRAM;
     Route: 048
  7. FERROFUMARAAT TABLET 200MG [Concomitant]
     Dosage: 600 MILLIGRAM;
     Route: 048
  8. BUMETANIDE [Suspect]
     Dosage: 2.5 MILLIGRAM;
     Route: 048
  9. BETADINE OPLOSSING LOTION 100MG?ML [Concomitant]
     Dosage: 1 DOSAGE FORMS;
  10. AMOXICILLINE/CLAVULAANZUUR DISPERTABL 500/125MG [Concomitant]
     Dosage: 3 DOSAGE FORMS;
     Route: 048
  11. VERAPAMIL HCL [Suspect]
     Indication: TACHYCARDIA
     Dosage: 160 MILLIGRAM;
     Route: 048
     Dates: start: 20110907
  12. HYDROCOBAMINE INJVLST 500MCG/ML AMPUL 2ML [Concomitant]
  13. ISORDIL TABLET 5MG [Concomitant]
  14. METOPROLOL TABLET MGA 100MG (SUCCINAAT) [Suspect]
     Indication: TACHYCARDIA
     Dosage: 200 MILLIGRAM;
     Route: 048
     Dates: start: 20110105
  15. METFORMINE TABLET 500MG [Concomitant]
     Dosage: 1500 MILLIGRAM;
     Route: 048

REACTIONS (1)
  - SHOCK [None]
